FAERS Safety Report 8016189-1 (Version None)
Quarter: 2011Q4

REPORT INFORMATION
  Report Type: 
  Country: None (occurrence: None)
  Receive Date: 20111230
  Receipt Date: 20111222
  Transmission Date: 20120403
  Serious: Yes (Hospitalization)
  Sender: FDA-Public Use
  Company Number: US-US-EMD SERONO, INC.-7102545

PATIENT
  Sex: Female

DRUGS (5)
  1. MULTI-VITAMINS [Concomitant]
  2. VITAMIN D [Concomitant]
  3. CASCARA SAGRADA [Concomitant]
  4. REBIF [Suspect]
     Indication: MULTIPLE SCLEROSIS
     Route: 058
     Dates: start: 20111019
  5. GABAPENTIN [Concomitant]
     Indication: PAIN

REACTIONS (6)
  - INJECTION SITE HAEMATOMA [None]
  - GRAND MAL CONVULSION [None]
  - FATIGUE [None]
  - MYALGIA [None]
  - INJECTION SITE PAIN [None]
  - INFLUENZA LIKE ILLNESS [None]
